FAERS Safety Report 7077246-X (Version None)
Quarter: 2010Q4

REPORT INFORMATION
  Report Type: 
  Country: None (occurrence: None)
  Receive Date: 20101101
  Receipt Date: 20101025
  Transmission Date: 20110411
  Serious: Yes (Other)
  Sender: FDA-Public Use
  Company Number: CA-ROCHE-736877

PATIENT
  Sex: Female

DRUGS (2)
  1. PEGASYS [Suspect]
     Dosage: COMPLETED 48 WEEKS
     Route: 058
     Dates: end: 20100901
  2. COPEGUS [Suspect]
     Dosage: COMPLETED 48 WEEKS
     Route: 048
     Dates: end: 20100901

REACTIONS (2)
  - DEEP VEIN THROMBOSIS [None]
  - HEADACHE [None]
